FAERS Safety Report 4336928-0 (Version None)
Quarter: 2004Q2

REPORT INFORMATION
  Report Type: 
  Country: None (occurrence: None)
  Receive Date: 20040408
  Receipt Date: 20040329
  Transmission Date: 20050107
  Serious: Yes (Life-Threatening, Hospitalization)
  Sender: FDA-Public Use
  Company Number: K200400475

PATIENT
  Age: 23 Year
  Sex: Male
  Weight: 86.2 kg

DRUGS (1)
  1. EPIPEN (EPINEPHRINE) INJECTION, 0.3MG [Suspect]
     Indication: DYSPNOEA
     Dosage: 0.3 MG, SINGLE, INTRAMUSCULAR
     Route: 030
     Dates: start: 20040319, end: 20040319

REACTIONS (1)
  - CONVULSION [None]
